FAERS Safety Report 5321375-5 (Version None)
Quarter: 2007Q2

REPORT INFORMATION
  Report Type: 
  Country: None (occurrence: None)
  Receive Date: 20070504
  Receipt Date: 20070425
  Transmission Date: 20071010
  Serious: Yes (Hospitalization)
  Sender: FDA-Public Use
  Company Number: 2007SP007897

PATIENT
  Age: 59 Year
  Sex: Male
  Weight: 106 kg

DRUGS (2)
  1. TEMOZOLOMIDE (S-P) [Suspect]
     Indication: ASTROCYTOMA, LOW GRADE
     Dosage: PO
     Route: 048
     Dates: start: 20051121, end: 20060404
  2. AVASTIN [Suspect]
     Indication: ASTROCYTOMA, LOW GRADE

REACTIONS (12)
  - ASTHENIA [None]
  - CEREBROVASCULAR ACCIDENT [None]
  - CONFUSIONAL STATE [None]
  - CONVULSION [None]
  - COORDINATION ABNORMAL [None]
  - DISEASE PROGRESSION [None]
  - ENCEPHALOMALACIA [None]
  - HAEMORRHAGE [None]
  - HYDROCEPHALUS [None]
  - HYPONATRAEMIA [None]
  - MENTAL STATUS CHANGES [None]
  - PERIPHERAL MOTOR NEUROPATHY [None]
